FAERS Safety Report 22020107 (Version 1)
Quarter: 2023Q1

REPORT INFORMATION
  Report Type: Spontaneous
  Country: FR (occurrence: FR)
  Receive Date: 20230222
  Receipt Date: 20230222
  Transmission Date: 20230417
  Serious: Yes (Hospitalization, Other)
  Sender: FDA-Public Use
  Company Number: FR-JNJFOC-20230203990

PATIENT
  Age: 70 Year
  Sex: Female

DRUGS (6)
  1. RITUXIMAB [Suspect]
     Active Substance: RITUXIMAB
     Indication: Splenic marginal zone lymphoma
     Dosage: 375 MG/M2, ON DAY 1
     Route: 042
  2. RITUXIMAB [Suspect]
     Active Substance: RITUXIMAB
     Dosage: 1400 MG, ON DAYS 8-15-21 FOR FIRST CYCLE, THEN 1400 MG EVERY 28 DAYS FOR THE FOLLOWING CYCLES
     Route: 058
     Dates: end: 20210705
  3. IMBRUVICA [Suspect]
     Active Substance: IBRUTINIB
     Indication: Splenic marginal zone lymphoma
     Dosage: 560 MG, 1X/DAY, 5 CYCLES
     Route: 048
     Dates: start: 202102, end: 202107
  4. IMBRUVICA [Suspect]
     Active Substance: IBRUTINIB
     Dosage: 560 MG, 1X/DAY
     Route: 048
  5. LEVOFLOXACIN [Concomitant]
     Active Substance: LEVOFLOXACIN
     Dosage: UNK
  6. CEFTRIAXONE [Concomitant]
     Active Substance: CEFTRIAXONE
     Dosage: UNK

REACTIONS (2)
  - Haemolytic anaemia [Recovered/Resolved]
  - Disseminated strongyloidiasis [Recovered/Resolved]
